FAERS Safety Report 16728222 (Version 2)
Quarter: 2019Q4

REPORT INFORMATION
  Report Type: Spontaneous
  Country: US (occurrence: US)
  Receive Date: 20190822
  Receipt Date: 20191011
  Transmission Date: 20200122
  Serious: No
  Sender: FDA-Public Use
  Company Number: US-GLAXOSMITHKLINE-US2019AMR148319

PATIENT
  Sex: Female
  Weight: 72.11 kg

DRUGS (1)
  1. TRELEGY ELLIPTA [Suspect]
     Active Substance: FLUTICASONE FUROATE\UMECLIDINIUM BROMIDE\VILANTEROL TRIFENATATE
     Indication: PRODUCT USED FOR UNKNOWN INDICATION
     Dosage: 200/25/62.5MCG
     Route: 065
     Dates: end: 20190807

REACTIONS (3)
  - Cough [Recovering/Resolving]
  - Drug intolerance [Unknown]
  - Dyspnoea [Recovering/Resolving]
